FAERS Safety Report 19668475 (Version 2)
Quarter: 2021Q3

REPORT INFORMATION
  Report Type: Spontaneous
  Country: JP (occurrence: JP)
  Receive Date: 20210806
  Receipt Date: 20210907
  Transmission Date: 20211014
  Serious: Yes (Hospitalization, Other)
  Sender: FDA-Public Use
  Company Number: JP-SYNEX-T202103474

PATIENT
  Age: 0 Year
  Sex: Female
  Weight: 3 kg

DRUGS (4)
  1. INOFLO [Suspect]
     Active Substance: NITRIC OXIDE
     Indication: NEWBORN PERSISTENT PULMONARY HYPERTENSION
     Dosage: UNK (INHALATION), STARTED 15 HOURS AFTER DELIVERY TO AGE OF 14 DAYS
     Route: 055
     Dates: start: 20200811, end: 202008
  2. INOFLO [Suspect]
     Active Substance: NITRIC OXIDE
     Dosage: UNK, TAPERED (INHALATION)
     Route: 055
     Dates: start: 202008, end: 20200824
  3. BOSENTAN. [Suspect]
     Active Substance: BOSENTAN
     Indication: PULMONARY HYPERTENSION
     Dosage: UNK (STARTED AT 7 DAYS OF AGE TO DAY11)
     Route: 048
     Dates: start: 20200817, end: 202008
  4. BOSENTAN. [Suspect]
     Active Substance: BOSENTAN
     Dosage: UNK (TAPERED)
     Route: 048
     Dates: start: 202008, end: 20200821

REACTIONS (5)
  - Therapy non-responder [Unknown]
  - Pulmonary congestion [Recovered/Resolved]
  - Neonatal hypotension [Unknown]
  - Condition aggravated [Unknown]
  - Alveolar capillary dysplasia [Unknown]

NARRATIVE: CASE EVENT DATE: 20000903
